FAERS Safety Report 4280281-8 (Version None)
Quarter: 2004Q1

REPORT INFORMATION
  Report Type: 
  Country: None (occurrence: None)
  Receive Date: 20040126
  Receipt Date: 20040112
  Transmission Date: 20041129
  Serious: Yes (Disabling, Other)
  Sender: FDA-Public Use
  Company Number: 001-0945-M0200657

PATIENT
  Age: 44 Year
  Sex: Female
  Weight: 54.4316 kg

DRUGS (28)
  1. NEURONTIN [Suspect]
     Indication: BIPOLAR DISORDER
     Dosage: 1800 MG (DAILY), ORAL
     Route: 048
     Dates: start: 20000101, end: 20020401
  2. LAMOTRIGINE [Concomitant]
  3. LITHIUM CARBONATE [Concomitant]
  4. CLONAZEPAM [Concomitant]
  5. METHYLPHENIDATE HYDROCHLORIDE (METHYLPHENIDATE HYDROCHLORIDE) [Concomitant]
  6. LEVOTHYROXINE SODIUM [Concomitant]
  7. LIOTHYRONINE SODIUM [Concomitant]
  8. SERTRALINE HCL [Concomitant]
  9. PILOCARPINE HYDROCHLORIDE (PILOCARPINE HYDROCHLORIDE) [Concomitant]
  10. METOPROLOL SUCCINATE [Concomitant]
  11. LANSOPRAZOLE [Concomitant]
  12. HYOSCYAMINE SULFATE AND PHENOBARBITAL [Concomitant]
  13. DILTIAZEM HYDROCHLORIDE [Concomitant]
  14. BUPROPION HYDROCHLORIDE [Concomitant]
  15. CELEBREX [Concomitant]
  16. QUETIAPINE FUMARATE (QUETIAPINE FUMARATE) [Concomitant]
  17. METOPROLOL TARTRATE [Concomitant]
  18. CITALOPRAM HYDROBROMIDE (CITALOPRAM HYDROBROMIDE) [Concomitant]
  19. HYOSCYAMINE SULFATE AND PHENOBARBITAL [Concomitant]
  20. OLANZAPINE [Concomitant]
  21. OMEPRAZOLE [Concomitant]
  22. NASAL PREPARATIONS [Concomitant]
  23. NEFAZODONE HYDROCHLORIDE (NEFAZODONE HYDROCHLORIDE) [Concomitant]
  24. TOTOLIN (GUAIFENESIN, PHENYLPROPANOLAMINE HYDROCHLORIDE) [Concomitant]
  25. MECLOZINE (MECLOZINE) [Concomitant]
  26. FLUTICASONE PROPIONATE [Concomitant]
  27. TRIMETHOBENZAMIDE HYDROCHLORIDE (TRIMETHOBENZAMIDE HYDROCHLORIDE) [Concomitant]
  28. RESPAIRE-SR-120 (GUAIFENESIN, PSEUDOEPHEDRINE HYDROCHLORIDE) [Concomitant]

REACTIONS (36)
  - APHASIA [None]
  - APHONIA [None]
  - BLOOD THYROID STIMULATING HORMONE DECREASED [None]
  - BRAIN DAMAGE [None]
  - CARPAL TUNNEL SYNDROME [None]
  - DEPRESSION [None]
  - DISSOCIATIVE DISORDER [None]
  - DISTURBANCE IN ATTENTION [None]
  - DRUG HYPERSENSITIVITY [None]
  - DRUG TOXICITY [None]
  - DYSARTHRIA [None]
  - DYSKINESIA [None]
  - EUSTACHIAN TUBE DYSFUNCTION [None]
  - FEELING JITTERY [None]
  - GINGIVAL RECESSION [None]
  - HYPERSENSITIVITY [None]
  - INTENTIONAL OVERDOSE [None]
  - INTERVERTEBRAL DISC DISORDER [None]
  - JOINT INJURY [None]
  - LIMB DISCOMFORT [None]
  - MEDICATION ERROR [None]
  - MENIERE'S DISEASE [None]
  - MENTAL IMPAIRMENT [None]
  - MUSCLE SPASMS [None]
  - POLYNEUROPATHY [None]
  - RADICULOPATHY [None]
  - ROAD TRAFFIC ACCIDENT [None]
  - SEDATION [None]
  - SPEECH DISORDER [None]
  - SWOLLEN TONGUE [None]
  - SYNCOPE [None]
  - TEMPERATURE INTOLERANCE [None]
  - TENDONITIS [None]
  - THYROID DISORDER [None]
  - TREMOR [None]
  - VIRAL LABYRINTHITIS [None]
